FAERS Safety Report 7373113-2 (Version None)
Quarter: 2011Q1

REPORT INFORMATION
  Report Type: 
  Country: None (occurrence: None)
  Receive Date: 20110324
  Receipt Date: 20110321
  Transmission Date: 20110831
  Serious: Yes (Hospitalization)
  Sender: FDA-Public Use
  Company Number: GB-ABBOTT-11P-167-0713348-00

PATIENT
  Sex: Male
  Weight: 74 kg

DRUGS (2)
  1. HUMIRA [Suspect]
     Indication: POLYARTHRITIS
     Dosage: ONGOING
     Route: 058
     Dates: start: 20100615
  2. METHOTREXATE [Concomitant]
     Indication: PRODUCT USED FOR UNKNOWN INDICATION
     Dates: start: 20080926, end: 20091115

REACTIONS (2)
  - MENISCUS REMOVAL [None]
  - ARTHROSCOPY [None]
